FAERS Safety Report 7549912-0 (Version None)
Quarter: 2011Q2

REPORT INFORMATION
  Report Type: 
  Country: None (occurrence: None)
  Receive Date: 20110615
  Receipt Date: 20110610
  Transmission Date: 20111010
  Serious: No
  Sender: FDA-Public Use
  Company Number: US-PFIZER INC-2011128865

PATIENT
  Sex: Female

DRUGS (2)
  1. ACETAMINOPHEN AND HYDROCODONE BITARTRATE [Interacting]
     Dosage: UNK
  2. LYRICA [Suspect]
     Dosage: UNK

REACTIONS (2)
  - OEDEMA PERIPHERAL [None]
  - DRUG INTERACTION [None]
